FAERS Safety Report 13802104 (Version 1)
Quarter: 2017Q3

REPORT INFORMATION
  Report Type: Spontaneous
  Country: US (occurrence: US)
  Receive Date: 20170727
  Receipt Date: 20170727
  Transmission Date: 20171127
  Serious: Yes (Hospitalization, Other)
  Sender: FDA-Public Use
  Company Number: None

PATIENT
  Age: 78 Year
  Sex: Female
  Weight: 76.6 kg

DRUGS (4)
  1. HYDRALAZINE (APRESOLINE) [Concomitant]
  2. NORMAL SALINE [Concomitant]
     Active Substance: SODIUM CHLORIDE
  3. ACTIVASE [Suspect]
     Active Substance: ALTEPLASE
     Indication: ISCHAEMIC STROKE
     Dosage: OTHER FREQUENCY:ONCE OVER 1 HOUR;?
     Route: 042
     Dates: start: 20170726, end: 20170726
  4. ACTIVASE [Suspect]
     Active Substance: ALTEPLASE
     Indication: ISCHAEMIC STROKE
     Dosage: OTHER FREQUENCY:ONCE OVER 1 MINUTE;?
     Route: 040
     Dates: start: 20170726, end: 20170726

REACTIONS (3)
  - Hypoxia [None]
  - Angioedema [None]
  - Respiratory failure [None]

NARRATIVE: CASE EVENT DATE: 20170726
